FAERS Safety Report 22290419 (Version 2)
Quarter: 2023Q2

REPORT INFORMATION
  Report Type: Spontaneous
  Country: CN (occurrence: None)
  Receive Date: 20230505
  Receipt Date: 20230516
  Transmission Date: 20230721
  Serious: Yes (Other)
  Sender: FDA-Public Use
  Company Number: 2023A100687

PATIENT
  Age: 84 Year
  Sex: Female
  Weight: 60 kg

DRUGS (5)
  1. IMFINZI [Suspect]
     Active Substance: DURVALUMAB
     Dosage: 1500 MG/CYCLE, INJECTION
     Route: 042
     Dates: start: 20220729, end: 20220804
  2. IMFINZI [Suspect]
     Active Substance: DURVALUMAB
     Dosage: 1500 MG/CYCLE, INJECTION
     Route: 042
  3. ETOPOSIDE [Concomitant]
     Active Substance: ETOPOSIDE
  4. CARBOPLATIN [Concomitant]
     Active Substance: CARBOPLATIN
  5. CISPLATIN [Concomitant]
     Active Substance: CISPLATIN

REACTIONS (1)
  - Metastases to central nervous system [Unknown]
